FAERS Safety Report 14902082 (Version 1)
Quarter: 2018Q2

REPORT INFORMATION
  Report Type: Spontaneous
  Country: US (occurrence: US)
  Receive Date: 20180428
  Receipt Date: 20180428
  Transmission Date: 20180711
  Serious: Yes (Other)
  Sender: FDA-Public Use
  Company Number: None

PATIENT
  Age: 62 Year
  Sex: Female
  Weight: 39.15 kg

DRUGS (6)
  1. ASPRINE [Concomitant]
  2. NAUSEA MED [Concomitant]
  3. BRILINTA [Suspect]
     Active Substance: TICAGRELOR
     Indication: ANGIOPLASTY
     Route: 048
     Dates: end: 20180426
  4. IVEPROVEN [Concomitant]
  5. COUGH MED [Concomitant]
  6. NITRO [Concomitant]
     Active Substance: NITROGLYCERIN

REACTIONS (2)
  - Blood urine present [None]
  - Dyspnoea [None]

NARRATIVE: CASE EVENT DATE: 20180425
